FAERS Safety Report 6750021-9 (Version None)
Quarter: 2010Q2

REPORT INFORMATION
  Report Type: 
  Country: None (occurrence: None)
  Receive Date: 20100601
  Receipt Date: 20100524
  Transmission Date: 20101027
  Serious: Yes (Death)
  Sender: FDA-Public Use
  Company Number: GXKR2010FR05833

PATIENT
  Age: 73 Year
  Sex: Female

DRUGS (3)
  1. DOCETAXEL (NGX) [Suspect]
     Indication: BREAST CANCER METASTATIC
     Dosage: 50 MG/M2, QW2
     Route: 065
  2. PREDNISONE TAB [Suspect]
     Indication: RESPIRATORY DISORDER
     Dosage: 1 MG/KG
     Route: 048
  3. LENOGRASTIM [Concomitant]
     Indication: BREAST CANCER METASTATIC
     Dosage: ON DAYS 3-8

REACTIONS (3)
  - DYSPNOEA [None]
  - PNEUMOCYSTIS JIROVECI PNEUMONIA [None]
  - RESPIRATORY FAILURE [None]
